FAERS Safety Report 10999065 (Version 6)
Quarter: 2015Q3

REPORT INFORMATION
  Report Type: Report from Study
  Country: US (occurrence: US)
  Receive Date: 20150408
  Receipt Date: 20150928
  Transmission Date: 20151125
  Serious: Yes (Hospitalization, Other)
  Sender: FDA-Public Use
  Company Number: US-ALEXION-A201501261

PATIENT

DRUGS (1)
  1. SOLIRIS [Suspect]
     Active Substance: ECULIZUMAB
     Indication: PAROXYSMAL NOCTURNAL HAEMOGLOBINURIA
     Dosage: UNK
     Route: 042
     Dates: end: 20150203

REACTIONS (17)
  - Haemoglobin abnormal [Not Recovered/Not Resolved]
  - Oropharyngeal pain [Unknown]
  - Depression [Not Recovered/Not Resolved]
  - Diarrhoea [Unknown]
  - Chromaturia [Unknown]
  - Headache [Unknown]
  - Cough [Unknown]
  - Fatigue [Not Recovered/Not Resolved]
  - Erectile dysfunction [Unknown]
  - White blood cell count abnormal [Unknown]
  - Malaise [Unknown]
  - Oropharyngeal pain [Unknown]
  - White blood cell count decreased [Unknown]
  - Malaise [Not Recovered/Not Resolved]
  - Haemoglobin abnormal [Unknown]
  - Pyrexia [Unknown]
  - Pyrexia [Not Recovered/Not Resolved]

NARRATIVE: CASE EVENT DATE: 20150401
